FAERS Safety Report 13292499 (Version 2)
Quarter: 2017Q2

REPORT INFORMATION
  Report Type: Spontaneous
  Country: US (occurrence: US)
  Receive Date: 20170303
  Receipt Date: 20170410
  Transmission Date: 20170830
  Serious: No
  Sender: FDA-Public Use
  Company Number: US-ASTRAZENECA-2017SE19863

PATIENT
  Sex: Female

DRUGS (1)
  1. SYMBICORT [Suspect]
     Active Substance: BUDESONIDE\FORMOTEROL FUMARATE DIHYDRATE
     Dosage: DOSE 160/4.5 MCG, FREQUENCY UNKNOWN
     Route: 055

REACTIONS (3)
  - Intentional device misuse [Unknown]
  - Product quality issue [Unknown]
  - Viral upper respiratory tract infection [Unknown]
